FAERS Safety Report 8973471 (Version 1)
Quarter: 2012Q4

REPORT INFORMATION
  Report Type: 
  Country: US (occurrence: US)
  Receive Date: 20121218
  Receipt Date: 20121218
  Transmission Date: 20130627
  Serious: Yes (Death, Other)
  Sender: FDA-Public Use
  Company Number: US-BRISTOL-MYERS SQUIBB COMPANY-16819112

PATIENT
  Age: 16 Year
  Sex: Female

DRUGS (2)
  1. ABILIFY [Suspect]
     Indication: DEPRESSION
     Dosage: adjunctive therapy,Dose incd to 5mg until 18Apr12
Until 30Apr2012
     Dates: start: 201202
  2. LEXAPRO [Suspect]
     Indication: DEPRESSION
     Dosage: incr to 10mg-5Nov07 
20mg-28Oct10
Until 30Apr2012
     Dates: start: 20071029

REACTIONS (2)
  - Completed suicide [Fatal]
  - Anger [Not Recovered/Not Resolved]
